FAERS Safety Report 22247083 (Version 1)
Quarter: 2023Q2

REPORT INFORMATION
  Report Type: Spontaneous
  Country: US (occurrence: US)
  Receive Date: 20230424
  Receipt Date: 20230424
  Transmission Date: 20230721
  Serious: No
  Sender: FDA-Public Use
  Company Number: US-RECORDATI RARE DISEASES INC.-2022003517

PATIENT
  Age: 44 Year
  Sex: Male

DRUGS (1)
  1. DESOXYN [Suspect]
     Active Substance: METHAMPHETAMINE HYDROCHLORIDE
     Indication: Attention deficit hyperactivity disorder
     Dosage: UNK
     Route: 048
     Dates: start: 2020

REACTIONS (3)
  - COVID-19 [Unknown]
  - Therapy interrupted [Unknown]
  - Off label use [Unknown]

NARRATIVE: CASE EVENT DATE: 20211101
